FAERS Safety Report 12279540 (Version 1)
Quarter: 2016Q2

REPORT INFORMATION
  Report Type: Report from Study
  Country: US (occurrence: US)
  Receive Date: 20160418
  Receipt Date: 20160418
  Transmission Date: 20160815
  Serious: Yes (Hospitalization, Other)
  Sender: FDA-Public Use
  Company Number: US-AMGEN-USASL2016045917

PATIENT
  Age: 34 Year
  Sex: Female

DRUGS (2)
  1. NPLATE [Suspect]
     Active Substance: ROMIPLOSTIM
     Indication: IMMUNE THROMBOCYTOPENIC PURPURA
     Dosage: UNK
     Route: 065
  2. ZITHROMAX [Suspect]
     Active Substance: AZITHROMYCIN DIHYDRATE
     Indication: SINUSITIS
     Dosage: UNK
     Route: 065

REACTIONS (16)
  - Immune system disorder [Unknown]
  - Sinusitis [Unknown]
  - Platelet count decreased [Unknown]
  - Blood creatinine increased [Unknown]
  - White blood cell count increased [Unknown]
  - Coagulopathy [Unknown]
  - Cerebrovascular accident [Unknown]
  - Red blood cell abnormality [Unknown]
  - Atypical pneumonia [Unknown]
  - Dialysis related complication [Unknown]
  - Brain injury [Unknown]
  - Endotracheal intubation [Unknown]
  - Oxygen consumption decreased [Unknown]
  - Vomiting [Unknown]
  - Pulmonary mass [Unknown]
  - Malaise [Unknown]

NARRATIVE: CASE EVENT DATE: 20160317
